FAERS Safety Report 4557450-2 (Version None)
Quarter: 2005Q1

REPORT INFORMATION
  Report Type: 
  Country: None (occurrence: None)
  Receive Date: 20050103
  Receipt Date: 20040908
  Transmission Date: 20050727
  Serious: Yes (Other)
  Sender: FDA-Public Use
  Company Number: 2004UW18981

PATIENT
  Age: 67 Year
  Sex: Female

DRUGS (5)
  1. CRESTOR [Suspect]
     Dosage: 10 MG QD PO
     Route: 048
  2. ATACAND [Concomitant]
  3. ADALAT [Concomitant]
  4. OGEN [Concomitant]
  5. INDAPAMIDE [Concomitant]

REACTIONS (1)
  - STOMATITIS [None]
